FAERS Safety Report 6770056-X (Version None)
Quarter: 2010Q2

REPORT INFORMATION
  Report Type: 
  Country: None (occurrence: None)
  Receive Date: 20100615
  Receipt Date: 20100609
  Transmission Date: 20101027
  Serious: Yes (Life-Threatening, Hospitalization)
  Sender: FDA-Public Use
  Company Number: GXKR2003GB00941

PATIENT
  Age: 9 Year
  Sex: Male
  Weight: 23 kg

DRUGS (11)
  1. GENTAMICIN (NGX) [Interacting]
     Indication: HAEMOPHILUS INFECTION
     Dosage: 10 MG/KG/DAY
     Route: 042
     Dates: start: 20020617, end: 20020624
  2. CEFUROXIME [Suspect]
     Indication: HAEMOPHILUS INFECTION
     Dosage: 200 MG/KG/DAY
     Route: 042
     Dates: start: 20020617, end: 20020624
  3. ATROVENT [Concomitant]
     Indication: BRONCHOSPASM
     Dosage: 500 MG, UNK
  4. PULMICORT [Concomitant]
     Indication: BRONCHOSPASM
     Dosage: 1 MG, UNK
  5. DESLORATADINE [Concomitant]
     Indication: HYPERSENSITIVITY
     Dosage: 5 MG, UNK
     Route: 048
  6. ASPIRIN [Concomitant]
     Dosage: 75 MG
     Route: 048
  7. PREDNISOLONE [Concomitant]
     Dosage: 10 MG
     Route: 048
  8. CREON [Concomitant]
     Indication: CYSTIC FIBROSIS
     Dosage: 8-10 TABS
     Route: 048
  9. PULMOZYME [Concomitant]
  10. SALBUTAMOL [Concomitant]
     Indication: BRONCHOSPASM
     Dosage: 2.5 MG
  11. GASTROGRAFIN [Concomitant]
     Indication: CONSTIPATION

REACTIONS (2)
  - RENAL FAILURE ACUTE [None]
  - RENAL TUBULAR NECROSIS [None]
